FAERS Safety Report 5867127-9 (Version None)
Quarter: 2008Q3

REPORT INFORMATION
  Report Type: 
  Country: None (occurrence: None)
  Receive Date: 20080828
  Receipt Date: 20080828
  Transmission Date: 20090109
  Serious: Yes (Hospitalization)
  Sender: FDA-Public Use
  Company Number: None

PATIENT
  Sex: Female
  Weight: 56.6996 kg

DRUGS (2)
  1. PRILOSEC [Suspect]
     Indication: GASTRIC ULCER
     Dosage: 2 MO. CURRENTLY TAKING
  2. NEXIUM [Suspect]

REACTIONS (4)
  - FALL [None]
  - FEMORAL NECK FRACTURE [None]
  - HAND FRACTURE [None]
  - HIP FRACTURE [None]
